FAERS Safety Report 5033556-9 (Version None)
Quarter: 2006Q2

REPORT INFORMATION
  Report Type: 
  Country: None (occurrence: None)
  Receive Date: 20060623
  Receipt Date: 20060413
  Transmission Date: 20061013
  Serious: Yes (Other)
  Sender: FDA-Public Use
  Company Number: US-ROCHE-444550

PATIENT
  Age: 16 Year
  Sex: Male
  Weight: 86.2 kg

DRUGS (1)
  1. ACCUTANE [Suspect]
     Indication: ACNE
     Route: 048
     Dates: start: 20051228, end: 20060406

REACTIONS (2)
  - LIPOPROTEIN (A) INCREASED [None]
  - RETINAL HAEMORRHAGE [None]
